FAERS Safety Report 22100898 (Version 1)
Quarter: 2023Q1

REPORT INFORMATION
  Report Type: Spontaneous
  Country: GB (occurrence: GB)
  Receive Date: 20230316
  Receipt Date: 20230316
  Transmission Date: 20230418
  Serious: Yes (Other)
  Sender: FDA-Public Use
  Company Number: GB-MHRA-MED-202303072039341170-MKLVD

PATIENT
  Age: 37 Year
  Sex: Female
  Weight: 156 kg

DRUGS (3)
  1. SERTRALINE [Suspect]
     Active Substance: SERTRALINE HYDROCHLORIDE
     Indication: Anxiety
     Dosage: 50 MILLIGRAM, ONCE A DAY, ON WAKING
     Route: 065
     Dates: start: 20221220
  2. DESOGESTREL [Concomitant]
     Active Substance: DESOGESTREL
     Indication: Polycystic ovaries
     Dosage: UNK
     Route: 065
     Dates: start: 20150101
  3. METFORMIN [Concomitant]
     Active Substance: METFORMIN HYDROCHLORIDE
     Indication: Insulin resistance
     Dosage: UNK
     Route: 065
     Dates: start: 20150101

REACTIONS (3)
  - Insomnia [Recovering/Resolving]
  - Gastritis [Recovering/Resolving]
  - Arthralgia [Recovering/Resolving]

NARRATIVE: CASE EVENT DATE: 20221220
